FAERS Safety Report 9192742 (Version 1)
Quarter: 2013Q1

REPORT INFORMATION
  Report Type: Spontaneous
  Country: US (occurrence: None)
  Receive Date: 20130325
  Receipt Date: 20130325
  Transmission Date: 20140127
  Serious: No
  Sender: FDA-Public Use
  Company Number: None

PATIENT
  Sex: Male
  Weight: 70.3 kg

DRUGS (6)
  1. CYCLOPHOSPHAMIDE [Suspect]
     Indication: LEUKAEMIA
  2. DOXORUBICIN HYDROCHLORIDE [Suspect]
  3. ETOPOSIDE (VP-16) [Suspect]
  4. IFOSFAMIDE [Suspect]
  5. TOPOTECAN [Suspect]
  6. VINCRISTINE SULFATE [Suspect]

REACTIONS (3)
  - Humerus fracture [None]
  - Pancytopenia [None]
  - Acute myeloid leukaemia [None]
